FAERS Safety Report 15885123 (Version 1)
Quarter: 2019Q1

REPORT INFORMATION
  Report Type: Report from Study
  Country: US (occurrence: US)
  Receive Date: 20190129
  Receipt Date: 20190129
  Transmission Date: 20190417
  Serious: Yes (Other)
  Sender: FDA-Public Use
  Company Number: US-ALEXION PHARMACEUTICALS INC.-A201901261

PATIENT
  Sex: Female

DRUGS (1)
  1. SOLIRIS [Suspect]
     Active Substance: ECULIZUMAB
     Indication: PAROXYSMAL NOCTURNAL HAEMOGLOBINURIA
     Route: 065

REACTIONS (12)
  - Neutrophil count decreased [Unknown]
  - Lymphocyte count increased [Unknown]
  - Haemoglobin decreased [Unknown]
  - Mean cell haemoglobin concentration increased [Unknown]
  - Haematocrit decreased [Unknown]
  - Polychromic red blood cells present [Unknown]
  - White blood cell count decreased [Unknown]
  - Red cell distribution width increased [Unknown]
  - Platelet count decreased [Unknown]
  - Mean cell haemoglobin increased [Unknown]
  - Red blood cell count decreased [Unknown]
  - Mean cell volume increased [Unknown]

NARRATIVE: CASE EVENT DATE: 20181228
